FAERS Safety Report 5692870-4 (Version None)
Quarter: 2008Q2

REPORT INFORMATION
  Report Type: 
  Country: None (occurrence: None)
  Receive Date: 20080401
  Receipt Date: 20080317
  Transmission Date: 20081010
  Serious: Yes (Hospitalization)
  Sender: FDA-Public Use
  Company Number: DSA_31625_2008

PATIENT
  Sex: Female

DRUGS (2)
  1. LORAZEPAM [Suspect]
     Dosage: 6 MG 1X NOT HE PRESCRIBED AMOUNT, ORAL
     Route: 048
     Dates: start: 20080316, end: 20080316
  2. DOXEPIN HCL [Suspect]
     Dosage: 2 DF 1X NOT THE PRESCRIBED AMOUNT. ORAL
     Route: 048
     Dates: start: 20080316, end: 20080316

REACTIONS (3)
  - INTENTIONAL OVERDOSE [None]
  - SUICIDE ATTEMPT [None]
  - VOMITING [None]
